FAERS Safety Report 8240724-1 (Version None)
Quarter: 2012Q1

REPORT INFORMATION
  Report Type: 
  Country: None (occurrence: None)
  Receive Date: 20120328
  Receipt Date: 20120319
  Transmission Date: 20120608
  Serious: Yes (Disabling)
  Sender: FDA-Public Use
  Company Number: BR-ASTRAZENECA-2012SE18995

PATIENT
  Age: 71 Year
  Sex: Female
  Weight: 120 kg

DRUGS (6)
  1. GLUCOFORMIN [Concomitant]
     Indication: DIABETES MELLITUS
     Route: 048
     Dates: start: 20060101
  2. CRESTOR [Suspect]
     Route: 048
  3. DIONDEL [Concomitant]
     Indication: ARRHYTHMIA
     Route: 048
     Dates: start: 20100101
  4. PROPAFENONE HCL [Concomitant]
  5. CRESTOR [Suspect]
     Indication: BLOOD CHOLESTEROL INCREASED
     Route: 048
     Dates: start: 20110101, end: 20111101
  6. ATACAND HCT [Suspect]
     Indication: HYPERTENSION
     Dosage: 16/12.5 MG DAILY
     Route: 048
     Dates: start: 20120101, end: 20120301

REACTIONS (4)
  - BLOOD PRESSURE INCREASED [None]
  - FALL [None]
  - LIMB INJURY [None]
  - DRUG INEFFECTIVE [None]
